FAERS Safety Report 17324728 (Version 1)
Quarter: 2020Q1

REPORT INFORMATION
  Report Type: Spontaneous
  Country: FR (occurrence: FR)
  Receive Date: 20200127
  Receipt Date: 20200127
  Transmission Date: 20200409
  Serious: Yes (Hospitalization)
  Sender: FDA-Public Use
  Company Number: FR-ACCORD-170747

PATIENT
  Age: 64 Year
  Sex: Male

DRUGS (18)
  1. ETOPOSIDE. [Suspect]
     Active Substance: ETOPOSIDE
     Indication: LYMPHOMA
     Route: 065
     Dates: start: 20190924
  2. DOXORUBICIN [Concomitant]
     Active Substance: DOXORUBICIN
     Route: 065
     Dates: start: 20191010
  3. LEVOTHYROX [Concomitant]
     Active Substance: LEVOTHYROXINE
     Dosage: STRENGTH: 25 MICROGRAMS, SCORED TABLET
     Route: 048
  4. XARELTO [Concomitant]
     Active Substance: RIVAROXABAN
     Dosage: UNSPECIFIED
     Route: 048
  5. INNOHEP [Concomitant]
     Active Substance: TINZAPARIN SODIUM
     Dosage: UNSPECIFIED
     Route: 058
  6. PARACETAMOL [Concomitant]
     Active Substance: ACETAMINOPHEN
     Route: 048
  7. ZINNAT [Concomitant]
     Active Substance: CEFUROXIME
     Dosage: STRENGTH: 250 MG
     Route: 048
  8. SOLUPRED [Concomitant]
     Dosage: STRENGTH: 20 MG
     Dates: start: 20190918
  9. ZIEXTENZO [Concomitant]
     Active Substance: PEGFILGRASTIM-BMEZ
     Dosage: STRENGTH: 6 MG
     Route: 058
  10. CYCLOPHOSPHAMIDE/CYCLOPHOSPHAMIDE MONOHYDRATE [Suspect]
     Active Substance: CYCLOPHOSPHAMIDE
     Indication: LYMPHOMA
     Route: 065
     Dates: start: 20190924
  11. VALACICLOVIR ALMUS [Concomitant]
     Active Substance: VALACYCLOVIR HYDROCHLORIDE
     Dosage: STRENGTH: 500 MG, SCORED FILM-COATED TABLET
     Route: 048
  12. EPLERENONE. [Concomitant]
     Active Substance: EPLERENONE
     Route: 048
  13. ADCETRIS [Suspect]
     Active Substance: BRENTUXIMAB VEDOTIN
     Indication: LYMPHOMA
     Dosage: STRENGTH:  50 MG
     Route: 042
     Dates: start: 20191010
  14. BACTRIM [Concomitant]
     Active Substance: SULFAMETHOXAZOLE\TRIMETHOPRIM
     Indication: LYMPHOMA
     Route: 048
     Dates: start: 20191110
  15. CORTANCYL [Concomitant]
     Active Substance: PREDNISONE
     Dosage: STRENGTH: 5 MG
     Route: 048
  16. OFLOXACIN ARROW [Concomitant]
     Active Substance: OFLOXACIN
     Dosage: STRENGTH: 200 MG, SCORED FILM-COATED TABLET
     Route: 048
  17. BISOPROLOL [Concomitant]
     Active Substance: BISOPROLOL
     Route: 048
  18. CETIRIZINE [Concomitant]
     Active Substance: CETIRIZINE HYDROCHLORIDE
     Route: 048

REACTIONS (1)
  - Colitis [Recovered/Resolved]

NARRATIVE: CASE EVENT DATE: 201910
